FAERS Safety Report 13332503 (Version 3)
Quarter: 2017Q3

REPORT INFORMATION
  Report Type: Spontaneous
  Country: JP (occurrence: JP)
  Receive Date: 20170314
  Receipt Date: 20170818
  Transmission Date: 20171127
  Serious: Yes (Life-Threatening, Hospitalization, Other)
  Sender: FDA-Public Use
  Company Number: JP-009507513-1703JPN000859J

PATIENT
  Age: 69 Year
  Sex: Female
  Weight: 38 kg

DRUGS (11)
  1. CANCIDAS [Suspect]
     Active Substance: CASPOFUNGIN ACETATE
     Indication: FEBRILE NEUTROPENIA
     Dosage: 70 MG, QD
     Route: 041
     Dates: start: 20160330, end: 20160330
  2. PREDONINE [Concomitant]
     Active Substance: PREDNISOLONE
     Indication: SCLERODERMA
     Dosage: 5 MG, QD
     Route: 048
  3. TAKEPRON [Concomitant]
     Active Substance: LANSOPRAZOLE
     Indication: PROPHYLAXIS
     Dosage: 15 MG, QD
     Route: 048
  4. MEROPEN [Concomitant]
     Active Substance: MEROPENEM
     Indication: FEBRILE NEUTROPENIA
     Dosage: 1 G, TID
     Route: 051
     Dates: start: 20160401, end: 20160415
  5. RECOMODULIN [Concomitant]
     Active Substance: THROMBOMODULIN ALFA
     Indication: DISSEMINATED INTRAVASCULAR COAGULATION
     Dosage: 5120 IU, QD
     Route: 051
     Dates: start: 20160404, end: 20160410
  6. SIGMART [Concomitant]
     Active Substance: NICORANDIL
     Indication: ANGINA UNSTABLE
     Dosage: 96 MG, QD
     Route: 051
     Dates: start: 20160410, end: 20160412
  7. FIBRINOGEN I 125 [Concomitant]
     Indication: DISSEMINATED INTRAVASCULAR COAGULATION
     Dosage: 1 G, QD
     Route: 051
     Dates: start: 20160410, end: 20160410
  8. CANCIDAS [Suspect]
     Active Substance: CASPOFUNGIN ACETATE
     Indication: FEBRILE NEUTROPENIA
     Dosage: 50 MG, QD
     Route: 041
     Dates: start: 20160331, end: 20160409
  9. MAXIPIME [Concomitant]
     Active Substance: CEFEPIME HYDROCHLORIDE
     Indication: FEBRILE NEUTROPENIA
     Dosage: 2 G, BID
     Route: 051
     Dates: start: 20160326, end: 20160401
  10. NEUTROGIN [Concomitant]
     Active Substance: LENOGRASTIM
     Indication: ACUTE MYELOID LEUKAEMIA
     Dosage: 250 MICROGRAM, QD
     Route: 051
     Dates: start: 20160405, end: 20160408
  11. TEICOPLANIN [Concomitant]
     Active Substance: TEICOPLANIN
     Indication: FEBRILE NEUTROPENIA
     Dosage: 400 MG, QD
     Route: 051
     Dates: start: 20160330, end: 20160413

REACTIONS (8)
  - Acute myocardial infarction [Recovered/Resolved with Sequelae]
  - Disseminated intravascular coagulation [Recovered/Resolved]
  - Blood lactate dehydrogenase increased [Recovered/Resolved]
  - Blood alkaline phosphatase increased [Recovered/Resolved]
  - Acute kidney injury [Recovered/Resolved]
  - Gastroenteritis staphylococcal [Recovering/Resolving]
  - Gamma-glutamyltransferase increased [Recovered/Resolved]
  - Aspartate aminotransferase increased [Recovered/Resolved]

NARRATIVE: CASE EVENT DATE: 20160330
